FAERS Safety Report 4361605-X (Version None)
Quarter: 2004Q2

REPORT INFORMATION
  Report Type: 
  Country: None (occurrence: None)
  Receive Date: 20040521
  Receipt Date: 20040409
  Transmission Date: 20050107
  Serious: No
  Sender: FDA-Public Use
  Company Number: US-GLAXOSMITHKLINE-A0506485A

PATIENT
  Age: 90 Year
  Sex: Female

DRUGS (7)
  1. WELLBUTRIN XL [Suspect]
     Indication: DEPRESSION
     Dosage: 150MG PER DAY
     Route: 048
     Dates: start: 20040117
  2. ARICEPT [Concomitant]
  3. COUMADIN [Concomitant]
  4. LOPID [Concomitant]
  5. MULTIVITAMIN [Concomitant]
  6. ACTONEL [Concomitant]
  7. CALCIUM [Concomitant]

REACTIONS (3)
  - AGITATION [None]
  - BALANCE DISORDER [None]
  - FEELING ABNORMAL [None]
